FAERS Safety Report 5393065-4 (Version None)
Quarter: 2007Q3

REPORT INFORMATION
  Report Type: 
  Country: None (occurrence: None)
  Receive Date: 20070719
  Receipt Date: 20070709
  Transmission Date: 20080115
  Serious: Yes (Death, Other)
  Sender: FDA-Public Use
  Company Number: 2007-01950

PATIENT
  Age: 75 Year
  Sex: Male

DRUGS (4)
  1. VELCADE [Suspect]
     Indication: MANTLE CELL LYMPHOMA
     Dosage: 1.30 MG/M2
     Dates: start: 20060401
  2. DOXORUBICIN HCL [Suspect]
     Indication: MANTLE CELL LYMPHOMA
     Dosage: 50.00 MG/M2
     Dates: start: 20060401
  3. RITUXIMAB (RITUXIMAB) [Suspect]
     Indication: MANTLE CELL LYMPHOMA
     Dates: start: 20060401
  4. FLUDARABINE PHOSPHATE [Suspect]
     Indication: MANTLE CELL LYMPHOMA
     Dates: start: 20060401

REACTIONS (4)
  - ASTHENIA [None]
  - ATRIAL FIBRILLATION [None]
  - DISEASE PROGRESSION [None]
  - EJECTION FRACTION DECREASED [None]
